FAERS Safety Report 9675597 (Version 1)
Quarter: 2013Q4

REPORT INFORMATION
  Report Type: Spontaneous
  Country: US (occurrence: US)
  Receive Date: 20131107
  Receipt Date: 20131107
  Transmission Date: 20140711
  Serious: Yes (Hospitalization)
  Sender: FDA-Public Use
  Company Number: US-MYLANLABS-2013S1023592

PATIENT
  Age: 50 Year
  Sex: Male
  Weight: 59.88 kg

DRUGS (3)
  1. HALOPERIDOL TABLETS, USP [Suspect]
     Indication: SCHIZOPHRENIA
     Route: 048
     Dates: start: 201307, end: 20131002
  2. HALOPERIDOL TABLETS, USP [Suspect]
     Indication: OBSESSIVE-COMPULSIVE DISORDER
     Route: 048
     Dates: start: 201307, end: 20131002
  3. DIPHENHYDRAMINE [Concomitant]

REACTIONS (14)
  - Chest pain [Recovering/Resolving]
  - Muscle twitching [Not Recovered/Not Resolved]
  - Catatonia [Not Recovered/Not Resolved]
  - Vision blurred [Not Recovered/Not Resolved]
  - Weight decreased [Recovering/Resolving]
  - Anxiety [Recovering/Resolving]
  - Asthenia [Recovering/Resolving]
  - Movement disorder [Not Recovered/Not Resolved]
  - Dyskinesia [Not Recovered/Not Resolved]
  - Constipation [Recovered/Resolved]
  - Hypersomnia [Recovering/Resolving]
  - Ageusia [Recovered/Resolved]
  - Drooling [Not Recovered/Not Resolved]
  - Asthenopia [Not Recovered/Not Resolved]
